FAERS Safety Report 5148997-9 (Version None)
Quarter: 2006Q4

REPORT INFORMATION
  Report Type: 
  Country: None (occurrence: None)
  Receive Date: 20061113
  Receipt Date: 20061102
  Transmission Date: 20070319
  Serious: Yes (Other)
  Sender: FDA-Public Use
  Company Number: 2006AP05313

PATIENT
  Age: 62 Year
  Sex: Female

DRUGS (1)
  1. CARBOCAIN [Suspect]
     Indication: ANAESTHESIA
     Route: 065

REACTIONS (1)
  - OXYGEN SATURATION DECREASED [None]
